FAERS Safety Report 26145227 (Version 1)
Quarter: 2025Q4

REPORT INFORMATION
  Report Type: Report from Study
  Country: US (occurrence: US)
  Receive Date: 20251211
  Receipt Date: 20251211
  Transmission Date: 20260118
  Serious: Yes (Death, Hospitalization)
  Sender: BAUSCH AND LOMB
  Company Number: US-BAUSCHBL-2025BNL033338

PATIENT
  Age: 73 Year
  Sex: Male

DRUGS (1)
  1. MIEBO [Suspect]
     Active Substance: PERFLUOROHEXYLOCTANE
     Indication: Product used for unknown indication
     Dosage: INSTILL 1 DROP INTO EACH EYE 4 TIMES DAILY
     Route: 047
     Dates: start: 20241109

REACTIONS (1)
  - Surgery [Fatal]

NARRATIVE: CASE EVENT DATE: 20251015
